FAERS Safety Report 4825710-3 (Version None)
Quarter: 2005Q4

REPORT INFORMATION
  Report Type: 
  Country: None (occurrence: None)
  Receive Date: 20051109
  Receipt Date: 20051027
  Transmission Date: 20060501
  Serious: Yes (Other)
  Sender: FDA-Public Use
  Company Number: 2005147783

PATIENT
  Sex: Female
  Weight: 78.9259 kg

DRUGS (13)
  1. NEURONTIN [Suspect]
     Indication: CONVULSION
     Dosage: 300 MG (100 MG, 3 IN 1 D),
     Route: 048
     Dates: end: 20051001
  2. LYRICA [Suspect]
     Indication: CONVULSION
     Dosage: 150 MG (50 MG, 3 IN 1 D),
     Route: 048
     Dates: start: 20051001
  3. ZYRTEC [Concomitant]
  4. DEPAKOTE [Concomitant]
  5. MOBIC [Concomitant]
  6. PLAVIX [Concomitant]
  7. PROTONIX [Concomitant]
  8. MONTELUKAST (MONTELUKAST) [Concomitant]
  9. ZOCOR [Concomitant]
  10. COMBIVENT [Concomitant]
  11. ALBUTEROL [Concomitant]
  12. LEXAPRO [Concomitant]
  13. HUMULIN 70/30 [Concomitant]

REACTIONS (8)
  - BLOOD GLUCOSE DECREASED [None]
  - BLOOD GLUCOSE INCREASED [None]
  - CONVULSION [None]
  - FEELING ABNORMAL [None]
  - GLYCOSYLATED HAEMOGLOBIN INCREASED [None]
  - MYOCARDIAL INFARCTION [None]
  - PAIN [None]
  - THERAPY NON-RESPONDER [None]
